FAERS Safety Report 22236105 (Version 8)
Quarter: 2024Q4

REPORT INFORMATION
  Report Type: Spontaneous
  Country: US (occurrence: US)
  Receive Date: 20230420
  Receipt Date: 20241023
  Transmission Date: 20250114
  Serious: No
  Sender: PFIZER
  Company Number: US-PFIZER INC-PV202300071978

PATIENT
  Age: 69 Year
  Sex: Female
  Weight: 92.971 kg

DRUGS (1)
  1. IBRANCE [Suspect]
     Active Substance: PALBOCICLIB
     Dosage: 125 MG, 3X7 UD(AS DIRECTED) TAB 21

REACTIONS (3)
  - Dyspnoea [Unknown]
  - Cough [Unknown]
  - Fatigue [Unknown]
